FAERS Safety Report 6122523-X (Version None)
Quarter: 2009Q1

REPORT INFORMATION
  Report Type: 
  Country: None (occurrence: None)
  Receive Date: 20090318
  Receipt Date: 20090105
  Transmission Date: 20090719
  Serious: No
  Sender: FDA-Public Use
  Company Number: US-ASTRAZENECA-2009UW00316

PATIENT
  Age: 71 Year
  Sex: Male
  Weight: 79.4 kg

DRUGS (5)
  1. SYMBICORT [Suspect]
     Indication: ASTHMA
     Dosage: 160/4.5 UG, 2 PUFFS, BID
     Route: 055
     Dates: start: 20081222
  2. SYNTHROID [Concomitant]
  3. FLOMAX [Concomitant]
  4. ZOCOR [Concomitant]
  5. FLONASE [Concomitant]

REACTIONS (1)
  - ORAL HERPES [None]
